FAERS Safety Report 23100873 (Version 3)
Quarter: 2023Q4

REPORT INFORMATION
  Report Type: Report from Study
  Country: US (occurrence: US)
  Receive Date: 20231024
  Receipt Date: 20231102
  Transmission Date: 20240110
  Serious: Yes (Hospitalization, Other)
  Sender: FDA-Public Use
  Company Number: US-BAUSCH-BL-2023-015789

PATIENT
  Age: 51 Year
  Sex: Male

DRUGS (1)
  1. XIFAXAN [Suspect]
     Active Substance: RIFAXIMIN
     Indication: Hepatic encephalopathy
     Route: 048
     Dates: start: 20230921, end: 2023

REACTIONS (11)
  - Loss of consciousness [Unknown]
  - Fall [Unknown]
  - Femur fracture [Unknown]
  - Hepatic cirrhosis [Unknown]
  - Condition aggravated [Unknown]
  - Dizziness [Unknown]
  - Decreased appetite [Unknown]
  - Insomnia [Unknown]
  - Oedema [Unknown]
  - Urine output decreased [Unknown]
  - Product availability issue [Unknown]

NARRATIVE: CASE EVENT DATE: 20230928
